FAERS Safety Report 7897142-5 (Version None)
Quarter: 2011Q4

REPORT INFORMATION
  Report Type: 
  Country: None (occurrence: None)
  Receive Date: 20111107
  Receipt Date: 20111031
  Transmission Date: 20120403
  Serious: Yes (Hospitalization)
  Sender: FDA-Public Use
  Company Number: MX-SANOFI-AVENTIS-2011SA071822

PATIENT
  Age: 59 Year
  Sex: Male
  Weight: 92 kg

DRUGS (2)
  1. GALVUS MET [Concomitant]
     Indication: TYPE 2 DIABETES MELLITUS
     Route: 048
  2. INSULIN GLARGINE [Suspect]
     Indication: TYPE 2 DIABETES MELLITUS
     Route: 058

REACTIONS (5)
  - DIZZINESS [None]
  - ACCIDENT AT WORK [None]
  - NAUSEA [None]
  - NEUROPATHY PERIPHERAL [None]
  - HYPERGLYCAEMIA [None]
